FAERS Safety Report 6845188-8 (Version None)
Quarter: 2010Q3

REPORT INFORMATION
  Report Type: 
  Country: None (occurrence: None)
  Receive Date: 20100715
  Receipt Date: 20070816
  Transmission Date: 20110219
  Serious: No
  Sender: FDA-Public Use
  Company Number: US-PFIZER INC-2007068806

PATIENT
  Sex: Female

DRUGS (3)
  1. CHANTIX [Suspect]
  2. SEROQUEL [Concomitant]
  3. LEXAPRO [Concomitant]

REACTIONS (4)
  - AMENORRHOEA [None]
  - BLOOD URINE [None]
  - HEADACHE [None]
  - NAUSEA [None]
